FAERS Safety Report 7371392-9 (Version None)
Quarter: 2011Q1

REPORT INFORMATION
  Report Type: 
  Country: None (occurrence: None)
  Receive Date: 20110321
  Receipt Date: 20110321
  Transmission Date: 20110831
  Serious: Yes (Other)
  Sender: FDA-Public Use
  Company Number: None

PATIENT
  Age: 30 Year
  Sex: Female
  Weight: 71.6683 kg

DRUGS (2)
  1. AZATHIOPRINE 50MG MYLAN [Suspect]
     Indication: CROHN'S DISEASE
     Dosage: 1 AND 1/2 DAILY PO
     Route: 048
  2. AZATHIOPRINE 50MG MYLAN [Suspect]
     Indication: CROHN'S DISEASE
     Dosage: 1 AND 1/2 DAILY PO
     Route: 048
     Dates: start: 20110316, end: 20110317

REACTIONS (16)
  - CHEST DISCOMFORT [None]
  - COUGH [None]
  - PYREXIA [None]
  - DIZZINESS [None]
  - HEADACHE [None]
  - PALLOR [None]
  - OROPHARYNGEAL PAIN [None]
  - PAIN [None]
  - MYALGIA [None]
  - ABDOMINAL PAIN [None]
  - CHILLS [None]
  - FATIGUE [None]
  - VOMITING [None]
  - FEELING ABNORMAL [None]
  - INSOMNIA [None]
  - POLLAKIURIA [None]
